FAERS Safety Report 8548056-9 (Version None)
Quarter: 2012Q3

REPORT INFORMATION
  Report Type: 
  Country: None (occurrence: None)
  Receive Date: 20120730
  Receipt Date: 20120716
  Transmission Date: 20120928
  Serious: Yes (Other)
  Sender: FDA-Public Use
  Company Number: SE-AMGEN-QUU439601

PATIENT
  Age: 44 Year
  Sex: Female

DRUGS (3)
  1. METHOTREXATE [Concomitant]
     Dosage: UNK UNK, UNK
     Dates: start: 20091006
  2. ETANERCEPT [Suspect]
     Indication: RHEUMATOID ARTHRITIS
     Dosage: 100 MG, QWK
     Route: 058
     Dates: start: 20060908
  3. NSAID'S [Concomitant]
     Dosage: UNK UNK, UNK
     Dates: start: 20091006

REACTIONS (1)
  - IRITIS [None]
